FAERS Safety Report 17794547 (Version 1)
Quarter: 2020Q2

REPORT INFORMATION
  Report Type: Spontaneous
  Country: DE (occurrence: DE)
  Receive Date: 20200516
  Receipt Date: 20200516
  Transmission Date: 20200714
  Serious: Yes (Hospitalization)
  Sender: FDA-Public Use
  Company Number: DE-TEVA-2020-DE-1234770

PATIENT
  Age: 43 Year
  Sex: Male

DRUGS (10)
  1. METAMIZOL [Concomitant]
     Active Substance: METAMIZOLE SODIUM
     Dosage: 8 DOSAGE FORMS DAILY; 500 MG, 2-2-2-2
  2. TORASEMID [Concomitant]
     Active Substance: TORSEMIDE
     Dosage: 20 MILLIGRAM DAILY;  1-0-0-0
  3. PREDNISOLON [Suspect]
     Active Substance: PREDNISOLONE
     Dosage: 60 MILLIGRAM DAILY; 30 MG, 1-0-1-0
  4. METOPROLOL. [Concomitant]
     Active Substance: METOPROLOL
     Dosage: 47.5 MILLIGRAM DAILY;  1-0-0-0
  5. INFLIXIMAB [Suspect]
     Active Substance: INFLIXIMAB
     Dosage: NK MG, 3X
  6. PANTOPRAZOL [Concomitant]
     Active Substance: PANTOPRAZOLE SODIUM
     Dosage: 40 MILLIGRAM DAILY;  1-0-0-0
  7. PANTOPRAZOL [Concomitant]
     Active Substance: PANTOPRAZOLE SODIUM
     Dosage: 40 MILLIGRAM DAILY; 1-0-1-0
  8. DEKRISTOL 20000I.E. [Concomitant]
     Dosage: 20,000 IU / WEEK, THURSDAYS
  9. VEDOLIZUMAB [Suspect]
     Active Substance: VEDOLIZUMAB
     Dosage: NK MG, NK
  10. IBUPROFEN. [Concomitant]
     Active Substance: IBUPROFEN
     Dosage: 400 MG, IF NECESSARY

REACTIONS (5)
  - Musculoskeletal pain [Unknown]
  - Myalgia [Unknown]
  - Paresis [Unknown]
  - General physical health deterioration [Unknown]
  - Muscular weakness [Unknown]
